FAERS Safety Report 7714863-5 (Version None)
Quarter: 2011Q3

REPORT INFORMATION
  Report Type: 
  Country: None (occurrence: None)
  Receive Date: 20110829
  Receipt Date: 20110822
  Transmission Date: 20111222
  Serious: Yes (Hospitalization)
  Sender: FDA-Public Use
  Company Number: FR-TEVA-297707ISR

PATIENT
  Sex: Female

DRUGS (2)
  1. FUCIDINE CAP [Suspect]
     Indication: ONYCHOMYCOSIS
     Dosage: 1500 MILLIGRAM;
     Route: 048
     Dates: start: 20110701
  2. TERBINAFINE HCL [Suspect]
     Indication: ONYCHOMYCOSIS
     Dosage: 250 MILLIGRAM;
     Route: 048
     Dates: start: 20110701, end: 20110718

REACTIONS (1)
  - DRUG RASH WITH EOSINOPHILIA AND SYSTEMIC SYMPTOMS [None]
